FAERS Safety Report 22323195 (Version 1)
Quarter: 2023Q2

REPORT INFORMATION
  Report Type: Spontaneous
  Country: CN (occurrence: CN)
  Receive Date: 20230516
  Receipt Date: 20230516
  Transmission Date: 20230722
  Serious: Yes (Other)
  Sender: FDA-Public Use
  Company Number: CN-MPL-000001

PATIENT

DRUGS (1)
  1. LACOSAMIDE [Suspect]
     Active Substance: LACOSAMIDE
     Indication: Partial seizures
     Route: 065

REACTIONS (2)
  - Change in seizure presentation [Recovered/Resolved]
  - Ataxia [Recovered/Resolved]
